FAERS Safety Report 7591031-1 (Version None)
Quarter: 2011Q3

REPORT INFORMATION
  Report Type: 
  Country: None (occurrence: None)
  Receive Date: 20110705
  Receipt Date: 20110630
  Transmission Date: 20111222
  Serious: Yes (Other)
  Sender: FDA-Public Use
  Company Number: US-PFIZER INC-2011069755

PATIENT
  Age: 43 Year
  Sex: Female

DRUGS (1)
  1. CHANTIX [Suspect]
     Indication: SMOKING CESSATION THERAPY
     Dosage: UNK

REACTIONS (9)
  - SUICIDAL IDEATION [None]
  - DEPRESSION [None]
  - MENTAL DISORDER [None]
  - AGGRESSION [None]
  - ANXIETY [None]
  - INSOMNIA [None]
  - ABNORMAL BEHAVIOUR [None]
  - EMOTIONAL DISTRESS [None]
  - NIGHTMARE [None]
